FAERS Safety Report 17029590 (Version 3)
Quarter: 2020Q1

REPORT INFORMATION
  Report Type: Report from Study
  Country: FR (occurrence: FR)
  Receive Date: 20191114
  Receipt Date: 20200123
  Transmission Date: 20200409
  Serious: Yes (Other)
  Sender: FDA-Public Use
  Company Number: FR-RECORDATI RARE DISEASES-2076838

PATIENT
  Sex: Male
  Weight: 9.3 kg

DRUGS (5)
  1. SODIUM CITRATE. [Concomitant]
     Active Substance: SODIUM CITRATE
     Dates: start: 20180705
  2. VITAMIN B12 [Concomitant]
     Active Substance: CYANOCOBALAMIN
     Dates: start: 201807
  3. CARBAGLU [Suspect]
     Active Substance: CARGLUMIC ACID
     Route: 048
  4. CARBAGLU [Suspect]
     Active Substance: CARGLUMIC ACID
     Indication: ACIDOSIS
     Route: 048
     Dates: start: 20180705
  5. LEVOCARNITINE. [Concomitant]
     Active Substance: LEVOCARNITINE
     Dates: start: 20180705

REACTIONS (1)
  - Acute pulmonary oedema [Recovered/Resolved]

NARRATIVE: CASE EVENT DATE: 20190920
